FAERS Safety Report 11419095 (Version 7)
Quarter: 2017Q1

REPORT INFORMATION
  Report Type: Report from Study
  Country: BR (occurrence: BR)
  Receive Date: 20150826
  Receipt Date: 20170317
  Transmission Date: 20170428
  Serious: Yes (Hospitalization, Disabling, Other)
  Sender: FDA-Public Use
  Company Number: BR-ROCHE-1519472

PATIENT
  Sex: Female
  Weight: 65 kg

DRUGS (19)
  1. TRAMAL [Suspect]
     Active Substance: TRAMADOL
     Indication: PRODUCT USED FOR UNKNOWN INDICATION
     Route: 065
  2. TYLENOL [Concomitant]
     Active Substance: ACETAMINOPHEN
     Indication: PAIN
  3. MABTHERA [Suspect]
     Active Substance: RITUXIMAB
     Dosage: MOST RECENT DOSE
     Route: 042
     Dates: start: 20160115
  4. ARAVA [Concomitant]
     Active Substance: LEFLUNOMIDE
     Indication: RHEUMATOID ARTHRITIS
     Dosage: CAPSULE OR TABLET, NOT SPECIFIED
     Route: 065
  5. SERETIDE [Concomitant]
     Active Substance: FLUTICASONE PROPIONATE\SALMETEROL XINAFOATE
     Indication: ASTHMA
  6. MABTHERA [Suspect]
     Active Substance: RITUXIMAB
     Indication: RHEUMATOID ARTHRITIS
     Dosage: ON 26/MAY/2015, RECEIVED ONOTHER DOSE?MOSR RECENT DOSE ON 15/JAN/2016
     Route: 042
     Dates: start: 20110425
  7. PURAN [Concomitant]
     Active Substance: LEVOTHYROXINE SODIUM
     Indication: HYPOTHYROIDISM
     Dosage: CAPSULE OR TABLET, NOT SPECIFIED
     Route: 065
  8. PURAN [Concomitant]
     Active Substance: LEVOTHYROXINE SODIUM
     Indication: THYROID DISORDER
  9. VITAMIN B COMPLEX [Concomitant]
     Active Substance: CYANOCOBALAMIN\DEXPANTHENOL\NIACINAMIDE\PYRIDOXINE HYDROCHLORIDE\RIBOFLAVIN 5^-PHOSPHATE SODIUM\THIAMINE HYDROCHLORIDE\VITAMIN B COMPLEX
     Indication: ANAEMIA
     Dosage: CAPSULE OR TABLET, NOT SPECIFIED
     Route: 065
  10. LIPITOR [Concomitant]
     Active Substance: ATORVASTATIN CALCIUM
  11. MABTHERA [Suspect]
     Active Substance: RITUXIMAB
     Dosage: LAST DOSE RECEIVED ON 26-MAY-2015
     Route: 042
     Dates: start: 20150501
  12. TORLOS [Concomitant]
     Indication: HYPERTENSION
     Dosage: CAPSULE OR TABLET, NOT SPECIFIED
     Route: 065
  13. SIMVASTATIN. [Concomitant]
     Active Substance: SIMVASTATIN
     Indication: BLOOD CHOLESTEROL ABNORMAL
  14. ATORVASTATIN [Concomitant]
     Active Substance: ATORVASTATIN
     Dosage: CAPSULE OR TABLET, NOT SPECIFIED
     Route: 065
  15. OMEGA 3 [Concomitant]
     Active Substance: OMEGA-3 FATTY ACIDS
  16. AVALOX [Suspect]
     Active Substance: MOXIFLOXACIN HYDROCHLORIDE
     Indication: PRODUCT USED FOR UNKNOWN INDICATION
     Route: 065
  17. NPH INSULIN [Concomitant]
     Active Substance: INSULIN BEEF
     Indication: DIABETES MELLITUS
     Route: 065
  18. INSULIN [Concomitant]
     Active Substance: INSULIN NOS
     Indication: DIABETES MELLITUS
     Route: 065
  19. OMEPRAZOLE. [Concomitant]
     Active Substance: OMEPRAZOLE
     Indication: GASTRIC DISORDER
     Dosage: CAPSULE OR TABLET, NOT SPECIFIED
     Route: 065

REACTIONS (19)
  - Arthropathy [Not Recovered/Not Resolved]
  - Abasia [Not Recovered/Not Resolved]
  - Pain [Not Recovered/Not Resolved]
  - Arthropathy [Recovering/Resolving]
  - Blood cholesterol abnormal [Unknown]
  - Abasia [Unknown]
  - Cataract [Not Recovered/Not Resolved]
  - Arthritis infective [Recovering/Resolving]
  - Hypertension [Unknown]
  - Impaired healing [Unknown]
  - Asthma [Unknown]
  - Anaemia [Unknown]
  - Blood triglycerides abnormal [Unknown]
  - Arthropathy [Unknown]
  - Arthritis bacterial [Recovering/Resolving]
  - Arthralgia [Unknown]
  - Bacterial infection [Unknown]
  - Speech disorder [Not Recovered/Not Resolved]
  - Drug hypersensitivity [Unknown]

NARRATIVE: CASE EVENT DATE: 2014
